FAERS Safety Report 10309404 (Version 2)
Quarter: 2014Q4

REPORT INFORMATION
  Report Type: Spontaneous
  Country: BR (occurrence: BR)
  Receive Date: 20140716
  Receipt Date: 20141013
  Transmission Date: 20150528
  Serious: Yes (Hospitalization, Disabling, Other)
  Sender: FDA-Public Use
  Company Number: BR-ABBVIE-14P-020-1259437-00

PATIENT
  Age: 30 Year
  Sex: Male
  Weight: 60 kg

DRUGS (1)
  1. HUMIRA [Suspect]
     Active Substance: ADALIMUMAB
     Indication: RHEUMATOID ARTHRITIS
     Route: 058
     Dates: start: 20091124, end: 201101

REACTIONS (6)
  - Renal disorder [Recovered/Resolved]
  - Infection [Recovered/Resolved]
  - Hyperhidrosis [Recovered/Resolved]
  - Surgery [Unknown]
  - Dysuria [Recovered/Resolved]
  - Bedridden [Not Recovered/Not Resolved]

NARRATIVE: CASE EVENT DATE: 20110104
